FAERS Safety Report 19377531 (Version 6)
Quarter: 2021Q4

REPORT INFORMATION
  Report Type: Spontaneous
  Country: PL (occurrence: PL)
  Receive Date: 20210604
  Receipt Date: 20211125
  Transmission Date: 20220303
  Serious: Yes (Hospitalization, Other)
  Sender: FDA-Public Use
  Company Number: PL-002147023-NVSC2021PL107808

PATIENT
  Age: 65 Year
  Sex: Male

DRUGS (36)
  1. RAMIPRIL [Suspect]
     Active Substance: RAMIPRIL
     Indication: Product used for unknown indication
     Route: 065
     Dates: start: 20190811
  2. ASPIRIN [Suspect]
     Active Substance: ASPIRIN
     Indication: Product used for unknown indication
     Route: 065
     Dates: start: 20190811
  3. ASPIRIN [Suspect]
     Active Substance: ASPIRIN
     Route: 065
     Dates: start: 20191015
  4. ASPIRIN [Suspect]
     Active Substance: ASPIRIN
     Route: 065
     Dates: start: 20191115
  5. ATORVASTATIN [Suspect]
     Active Substance: ATORVASTATIN
     Indication: Product used for unknown indication
     Route: 065
  6. ATORVASTATIN [Suspect]
     Active Substance: ATORVASTATIN
     Route: 065
     Dates: start: 202103
  7. ATORVASTATIN [Suspect]
     Active Substance: ATORVASTATIN
     Route: 065
     Dates: start: 20190811
  8. METFORMIN [Suspect]
     Active Substance: METFORMIN HYDROCHLORIDE
     Indication: Product used for unknown indication
     Route: 065
     Dates: start: 20190811
  9. METFORMIN [Suspect]
     Active Substance: METFORMIN HYDROCHLORIDE
     Route: 065
     Dates: start: 202103
  10. EPLERENONE [Suspect]
     Active Substance: EPLERENONE
     Indication: Product used for unknown indication
     Route: 065
     Dates: start: 20190811
  11. EPLERENONE [Suspect]
     Active Substance: EPLERENONE
     Route: 065
     Dates: start: 202103
  12. EPLERENONE [Suspect]
     Active Substance: EPLERENONE
     Route: 065
  13. BISOPROLOL [Suspect]
     Active Substance: BISOPROLOL
     Indication: Product used for unknown indication
     Route: 065
     Dates: start: 20190811
  14. CLOPIDOGREL [Suspect]
     Active Substance: CLOPIDOGREL BISULFATE
     Indication: Product used for unknown indication
     Route: 065
     Dates: start: 20190811
  15. TORSEMIDE [Suspect]
     Active Substance: TORSEMIDE
     Indication: Product used for unknown indication
     Route: 065
     Dates: start: 20190811
  16. TORSEMIDE [Suspect]
     Active Substance: TORSEMIDE
     Route: 065
     Dates: start: 202103
  17. TORSEMIDE [Suspect]
     Active Substance: TORSEMIDE
     Route: 065
  18. CARVEDILOL [Suspect]
     Active Substance: CARVEDILOL
     Indication: Product used for unknown indication
     Dosage: 12.5 MG-0-6.25 MG
     Route: 065
  19. CARVEDILOL [Suspect]
     Active Substance: CARVEDILOL
     Route: 065
     Dates: start: 202103
  20. CARVEDILOL [Suspect]
     Active Substance: CARVEDILOL
     Route: 065
  21. CARVEDILOL [Suspect]
     Active Substance: CARVEDILOL
     Route: 065
     Dates: start: 202103
  22. SACUBITRIL\VALSARTAN [Suspect]
     Active Substance: SACUBITRIL\VALSARTAN
     Indication: Product used for unknown indication
     Dosage: DOSE: 24/26 MG
     Route: 065
     Dates: start: 20191017
  23. SACUBITRIL\VALSARTAN [Suspect]
     Active Substance: SACUBITRIL\VALSARTAN
     Dosage: DOSE: 24/26 MG
     Route: 065
     Dates: start: 202103
  24. OMEPRAZOLE [Suspect]
     Active Substance: OMEPRAZOLE
     Indication: Product used for unknown indication
     Route: 065
     Dates: start: 20190811
  25. APIXABAN [Suspect]
     Active Substance: APIXABAN
     Indication: Cerebrovascular accident prophylaxis
     Route: 065
     Dates: start: 20191115
  26. APIXABAN [Suspect]
     Active Substance: APIXABAN
     Route: 065
     Dates: start: 202010
  27. APIXABAN [Suspect]
     Active Substance: APIXABAN
     Route: 065
     Dates: start: 202103
  28. FUROSEMIDE [Suspect]
     Active Substance: FUROSEMIDE
     Indication: Product used for unknown indication
     Route: 065
     Dates: start: 202010
  29. FUROSEMIDE [Suspect]
     Active Substance: FUROSEMIDE
     Route: 065
  30. FUROSEMIDE [Suspect]
     Active Substance: FUROSEMIDE
     Route: 065
     Dates: start: 20191017
  31. METFORMIN HYDROCHLORIDE [Suspect]
     Active Substance: METFORMIN HYDROCHLORIDE
     Indication: Product used for unknown indication
     Route: 065
     Dates: start: 20190811
  32. METFORMIN HYDROCHLORIDE [Suspect]
     Active Substance: METFORMIN HYDROCHLORIDE
     Route: 065
     Dates: start: 202103
  33. ATORVASTATIN CALCIUM [Suspect]
     Active Substance: ATORVASTATIN CALCIUM
     Indication: Product used for unknown indication
     Route: 065
     Dates: start: 202103
  34. ATORVASTATIN CALCIUM [Suspect]
     Active Substance: ATORVASTATIN CALCIUM
     Route: 065
  35. ATORVASTATIN CALCIUM [Suspect]
     Active Substance: ATORVASTATIN CALCIUM
     Route: 065
     Dates: start: 20190811
  36. DAPAGLIFLOZIN [Concomitant]
     Active Substance: DAPAGLIFLOZIN
     Indication: Product used for unknown indication
     Route: 065
     Dates: start: 202103

REACTIONS (13)
  - Mitral valve incompetence [Unknown]
  - Concomitant disease aggravated [Unknown]
  - Mitral valve thickening [Unknown]
  - Pulmonary oedema [Unknown]
  - Glycosylated haemoglobin increased [Unknown]
  - Mitral valve calcification [Unknown]
  - N-terminal prohormone brain natriuretic peptide increased [Unknown]
  - Ejection fraction decreased [Unknown]
  - Heart rate decreased [Unknown]
  - Platelet count decreased [Unknown]
  - Glomerular filtration rate decreased [Unknown]
  - Haemoglobin decreased [Unknown]
  - Blood pressure decreased [Unknown]

NARRATIVE: CASE EVENT DATE: 20191101
